FAERS Safety Report 8325137-6 (Version None)
Quarter: 2012Q2

REPORT INFORMATION
  Report Type: 
  Country: None (occurrence: None)
  Receive Date: 20120427
  Receipt Date: 20120416
  Transmission Date: 20120825
  Serious: Yes (Other)
  Sender: FDA-Public Use
  Company Number: 2012P1014358

PATIENT
  Age: 26 Year
  Sex: Female

DRUGS (4)
  1. DOXYCYCLINE [Suspect]
     Indication: EVIDENCE BASED TREATMENT
  2. AMPICILLIN [Suspect]
     Indication: EVIDENCE BASED TREATMENT
  3. ACYCLOVIR [Suspect]
     Indication: EVIDENCE BASED TREATMENT
  4. CEFTRIAXONE [Suspect]
     Indication: EVIDENCE BASED TREATMENT

REACTIONS (5)
  - JARISCH-HERXHEIMER REACTION [None]
  - HYPOTENSION [None]
  - AGITATION [None]
  - ENCEPHALITIS [None]
  - RELAPSING FEVER [None]
